FAERS Safety Report 14926061 (Version 1)
Quarter: 2018Q2

REPORT INFORMATION
  Report Type: Spontaneous
  Country: NZ (occurrence: NZ)
  Receive Date: 20180522
  Receipt Date: 20180522
  Transmission Date: 20180711
  Serious: Yes (Hospitalization, Other)
  Sender: FDA-Public Use
  Company Number: NZ-ABBVIE-18K-118-2360119-00

PATIENT
  Age: 57 Year
  Sex: Female
  Weight: 81 kg

DRUGS (4)
  1. METHOTREXATE. [Concomitant]
     Active Substance: METHOTREXATE
     Dates: start: 201405
  2. HUMIRA [Suspect]
     Active Substance: ADALIMUMAB
     Indication: CROHN^S DISEASE
     Route: 058
     Dates: start: 2010
  3. METHOTREXATE. [Concomitant]
     Active Substance: METHOTREXATE
     Indication: CROHN^S DISEASE
     Dates: start: 2004, end: 200502
  4. METHOTREXATE. [Concomitant]
     Active Substance: METHOTREXATE
     Indication: HIDRADENITIS
     Dates: start: 200502, end: 2010

REACTIONS (22)
  - Dermal sinus [Unknown]
  - Pityriasis rosea [Recovered/Resolved]
  - Rash pustular [Unknown]
  - Groin abscess [Unknown]
  - Skin induration [Unknown]
  - Subcutaneous abscess [Unknown]
  - Weight decreased [Unknown]
  - Fistula [Unknown]
  - Skin lesion [Unknown]
  - Abdominal pain [Unknown]
  - Hidradenitis [Unknown]
  - Hidradenitis [Not Recovered/Not Resolved]
  - Crohn^s disease [Unknown]
  - Pruritus [Recovered/Resolved]
  - Rash erythematous [Recovered/Resolved]
  - Pain [Unknown]
  - Stoma site reaction [Unknown]
  - Fistula discharge [Unknown]
  - Tuberculin test positive [Unknown]
  - Overweight [Unknown]
  - Skin infection [Unknown]
  - Crohn^s disease [Unknown]

NARRATIVE: CASE EVENT DATE: 2010
